FAERS Safety Report 18920089 (Version 1)
Quarter: 2021Q1

REPORT INFORMATION
  Report Type: Report from Study
  Country: US (occurrence: US)
  Receive Date: 20210222
  Receipt Date: 20210222
  Transmission Date: 20210420
  Serious: Yes (Other)
  Sender: FDA-Public Use
  Company Number: US-TEVA-2021-US-1875406

PATIENT
  Age: 18 Year
  Sex: Female

DRUGS (2)
  1. CLARAVIS [Suspect]
     Active Substance: ISOTRETINOIN
     Route: 065
  2. LAMICTAL [Concomitant]
     Active Substance: LAMOTRIGINE
     Route: 065

REACTIONS (2)
  - Bipolar disorder [Unknown]
  - Mood altered [Recovered/Resolved]

NARRATIVE: CASE EVENT DATE: 20210101
